FAERS Safety Report 5431086-3 (Version None)
Quarter: 2007Q3

REPORT INFORMATION
  Report Type: 
  Country: None (occurrence: None)
  Receive Date: 20070830
  Receipt Date: 20070507
  Transmission Date: 20080115
  Serious: No
  Sender: FDA-Public Use
  Company Number: A0638901A

PATIENT
  Age: 20 Year
  Sex: Female
  Weight: 46.8 kg

DRUGS (2)
  1. WELLBUTRIN XL [Suspect]
     Indication: MAJOR DEPRESSION
     Dosage: 450MG PER DAY
     Route: 048
     Dates: start: 20060403
  2. NO CONCURRENT MEDICATION [Concomitant]

REACTIONS (3)
  - FEELING JITTERY [None]
  - MEDICATION ERROR [None]
  - PANIC REACTION [None]
